FAERS Safety Report 15374221 (Version 1)
Quarter: 2018Q3

REPORT INFORMATION
  Report Type: Spontaneous
  Country: US (occurrence: US)
  Receive Date: 20180912
  Receipt Date: 20180912
  Transmission Date: 20181010
  Serious: No
  Sender: FDA-Public Use
  Company Number: US-PFIZER INC-2018366378

PATIENT
  Age: 58 Year
  Sex: Female

DRUGS (1)
  1. EUCRISA [Suspect]
     Active Substance: CRISABOROLE
     Indication: VULVOVAGINAL PRURITUS
     Dosage: UNK

REACTIONS (2)
  - Drug ineffective [Unknown]
  - Application site pain [Unknown]
